FAERS Safety Report 4803034-8 (Version None)
Quarter: 2005Q4

REPORT INFORMATION
  Report Type: 
  Country: None (occurrence: None)
  Receive Date: 20051019
  Receipt Date: 20051017
  Transmission Date: 20060501
  Serious: Yes (Hospitalization)
  Sender: FDA-Public Use
  Company Number: US-GLAXOSMITHKLINE-A0578450A

PATIENT
  Age: 43 Year
  Sex: Male

DRUGS (5)
  1. COREG [Suspect]
     Indication: CARDIAC FAILURE CONGESTIVE
     Route: 048
     Dates: start: 20030501, end: 20051007
  2. LISINOPRIL [Concomitant]
  3. LASIX [Concomitant]
  4. ALDACTONE [Concomitant]
  5. DIGOXIN [Concomitant]

REACTIONS (9)
  - CHEST PAIN [None]
  - ERYTHEMA [None]
  - HEART RATE IRREGULAR [None]
  - HYPOAESTHESIA [None]
  - LOCALISED OEDEMA [None]
  - OEDEMA PERIPHERAL [None]
  - PAIN IN EXTREMITY [None]
  - PERIPHERAL COLDNESS [None]
  - SKIN DISCOLOURATION [None]
